FAERS Safety Report 5911472-5 (Version None)
Quarter: 2008Q4

REPORT INFORMATION
  Report Type: 
  Country: None (occurrence: None)
  Receive Date: 20081007
  Receipt Date: 20080925
  Transmission Date: 20090506
  Serious: Yes (Other)
  Sender: FDA-Public Use
  Company Number: US-PFIZER INC-2008082200

PATIENT
  Sex: Male

DRUGS (1)
  1. DILANTIN [Suspect]
     Dates: start: 19780101

REACTIONS (5)
  - BACK DISORDER [None]
  - PAIN [None]
  - TOOTH DISORDER [None]
  - TOOTH LOSS [None]
  - UNEVALUABLE EVENT [None]
